FAERS Safety Report 8197299-5 (Version None)
Quarter: 2012Q1

REPORT INFORMATION
  Report Type: 
  Country: None (occurrence: None)
  Receive Date: 20120309
  Receipt Date: 20120228
  Transmission Date: 20120608
  Serious: Yes (Death, Hospitalization)
  Sender: FDA-Public Use
  Company Number: JP-AMGEN-JPNCT2010011103

PATIENT
  Age: 72 Year
  Sex: Male
  Weight: 54 kg

DRUGS (20)
  1. ALMETA [Concomitant]
     Route: 062
     Dates: start: 20101020, end: 20110526
  2. MYSER [Concomitant]
     Route: 062
     Dates: start: 20101020, end: 20110526
  3. LEVOLEUCOVORIN CALCIUM [Suspect]
     Indication: COLORECTAL CANCER
     Route: 041
     Dates: start: 20101021, end: 20101202
  4. FLUOROURACIL [Suspect]
     Indication: COLORECTAL CANCER
     Route: 040
     Dates: start: 20101021, end: 20101202
  5. FLUOROURACIL [Suspect]
     Route: 040
     Dates: start: 20101221, end: 20110526
  6. LEVOLEUCOVORIN CALCIUM [Suspect]
     Route: 041
     Dates: start: 20101221, end: 20110526
  7. RINDERON-VG [Concomitant]
     Route: 062
  8. PANITUMUMAB [Suspect]
     Indication: COLORECTAL CANCER
     Dosage: 6 MG/KG, Q2WK
     Route: 041
     Dates: start: 20101021, end: 20101202
  9. OXALIPLATIN [Suspect]
     Indication: COLORECTAL CANCER
     Route: 041
     Dates: start: 20101021, end: 20101202
  10. MYSER [Concomitant]
     Route: 062
  11. FLUOROURACIL [Suspect]
     Route: 041
     Dates: start: 20101021, end: 20101202
  12. FLUOROURACIL [Suspect]
     Route: 041
     Dates: start: 20101221, end: 20110526
  13. CORTICOSTEROIDS [Concomitant]
     Indication: PROPHYLAXIS
     Route: 065
  14. HIRUDOID [Concomitant]
     Route: 062
  15. PANITUMUMAB [Suspect]
     Dosage: 1.8 MG/KG, Q2WK
     Route: 041
     Dates: start: 20101221, end: 20110127
  16. PANITUMUMAB [Suspect]
     Dosage: 3.6 MG/KG, Q2WK
     Route: 041
     Dates: start: 20110421, end: 20110526
  17. OXALIPLATIN [Suspect]
     Route: 041
     Dates: start: 20101221, end: 20110407
  18. ALMETA [Concomitant]
     Route: 062
  19. PANITUMUMAB [Suspect]
     Dosage: 1.8 MG/KG, Q2WK
     Route: 041
     Dates: start: 20110224, end: 20110407
  20. ANTIHISTAMINES [Concomitant]
     Indication: PROPHYLAXIS
     Route: 065

REACTIONS (4)
  - DUODENAL ULCER [None]
  - INTERSTITIAL LUNG DISEASE [None]
  - STOMATITIS [None]
  - DERMATITIS ACNEIFORM [None]
